FAERS Safety Report 14110048 (Version 1)
Quarter: 2017Q4

REPORT INFORMATION
  Report Type: Spontaneous
  Country: FR (occurrence: FR)
  Receive Date: 20171020
  Receipt Date: 20171020
  Transmission Date: 20180321
  Serious: Yes (Hospitalization)
  Sender: FDA-Public Use
  Company Number: FR-009507513-1710FRA008829

PATIENT
  Age: 52 Year
  Sex: Female

DRUGS (14)
  1. IMIPENEM AND CILASTATIN [Suspect]
     Active Substance: CILASTATIN SODIUM\IMIPENEM
     Dosage: 1 G, TID
     Route: 042
     Dates: start: 20170912
  2. TRIMEBUTINE [Concomitant]
     Active Substance: TRIMEBUTINE
  3. FUMAFER [Concomitant]
     Active Substance: FERROUS FUMARATE
  4. IMIPENEM AND CILASTATIN [Suspect]
     Active Substance: CILASTATIN SODIUM\IMIPENEM
     Dosage: 500 MG, QID
     Route: 042
     Dates: start: 20170909, end: 20170911
  5. ABILIFY [Concomitant]
     Active Substance: ARIPIPRAZOLE
  6. IMOVANE [Concomitant]
     Active Substance: ZOPICLONE
  7. IMIPENEM AND CILASTATIN [Suspect]
     Active Substance: CILASTATIN SODIUM\IMIPENEM
     Indication: SEPSIS
     Dosage: ON THE EVENING
     Route: 042
     Dates: start: 20170903, end: 20170903
  8. CITALOPRAM [Concomitant]
     Active Substance: CITALOPRAM HYDROBROMIDE
  9. LEVOTHYROXINE SODIUM. [Concomitant]
     Active Substance: LEVOTHYROXINE SODIUM
  10. SERESTA [Concomitant]
     Active Substance: OXAZEPAM
  11. LIORESAL [Concomitant]
     Active Substance: BACLOFEN
  12. LANSOPRAZOLE. [Concomitant]
     Active Substance: LANSOPRAZOLE
  13. SPASFON [Concomitant]
     Active Substance: PHLOROGLUCINOL\1,3,5-TRIMETHOXYBENZENE
  14. FOLINIC ACID [Concomitant]
     Active Substance: LEUCOVORIN

REACTIONS (1)
  - Status epilepticus [Recovering/Resolving]

NARRATIVE: CASE EVENT DATE: 20170912
